FAERS Safety Report 23164301 (Version 4)
Quarter: 2024Q4

REPORT INFORMATION
  Report Type: Spontaneous
  Country: US (occurrence: US)
  Receive Date: 20231109
  Receipt Date: 20241224
  Transmission Date: 20250115
  Serious: Yes (Hospitalization, Other)
  Sender: SANOFI AVENTIS
  Company Number: US-SA-SAC20230721000234

PATIENT
  Age: 80 Year
  Sex: Female

DRUGS (2)
  1. DUPIXENT [Suspect]
     Active Substance: DUPILUMAB
     Indication: Dermatitis atopic
     Dosage: 300 MG, QOW
     Route: 058
  2. DUPIXENT [Suspect]
     Active Substance: DUPILUMAB
     Indication: Dermatitis

REACTIONS (9)
  - Cellulitis [Recovering/Resolving]
  - Atrial fibrillation [Unknown]
  - Fatigue [Unknown]
  - Urinary incontinence [Recovered/Resolved]
  - Abdominal discomfort [Unknown]
  - Lymphadenopathy [Unknown]
  - Lip exfoliation [Unknown]
  - Lip erythema [Unknown]
  - Headache [Unknown]

NARRATIVE: CASE EVENT DATE: 20231019
